FAERS Safety Report 7405948-1 (Version None)
Quarter: 2011Q2

REPORT INFORMATION
  Report Type: 
  Country: None (occurrence: None)
  Receive Date: 20110411
  Receipt Date: 20110401
  Transmission Date: 20111010
  Serious: Yes (Hospitalization)
  Sender: FDA-Public Use
  Company Number: FR-ABBOTT-11P-056-0715828-00

PATIENT
  Age: 37 Year
  Sex: Female

DRUGS (5)
  1. COMMERCIAL HUMIRA [Concomitant]
     Indication: PRODUCT USED FOR UNKNOWN INDICATION
     Route: 058
     Dates: start: 20090330
  2. HUMIRA [Suspect]
     Dates: end: 20110301
  3. HUMIRA [Suspect]
     Dosage: WEEK 2
     Route: 058
     Dates: start: 20090330
  4. HUMIRA [Suspect]
     Indication: CROHN'S DISEASE
     Dosage: BASELINE
     Route: 058
     Dates: start: 20090301, end: 20090301
  5. PREDNISONE [Concomitant]
     Indication: CROHN'S DISEASE
     Dates: start: 20090301

REACTIONS (1)
  - INTESTINAL STENOSIS [None]
